FAERS Safety Report 9240284 (Version 1)
Quarter: 2013Q2

REPORT INFORMATION
  Report Type: Spontaneous
  Country: US (occurrence: None)
  Receive Date: 20130418
  Receipt Date: 20130418
  Transmission Date: 20140414
  Serious: No
  Sender: FDA-Public Use
  Company Number: None

PATIENT
  Sex: 0

DRUGS (1)
  1. ULTRAVIST [Suspect]
     Indication: IMAGING PROCEDURE
     Dates: start: 20130201, end: 20130201

REACTIONS (1)
  - Pruritus [None]
